FAERS Safety Report 11490199 (Version 1)
Quarter: 2015Q3

REPORT INFORMATION
  Report Type: Spontaneous
  Country: US (occurrence: US)
  Receive Date: 20150910
  Receipt Date: 20150910
  Transmission Date: 20151125
  Serious: No
  Sender: FDA-Public Use
  Company Number: US-TEVA-572985USA

PATIENT
  Age: 47 Year
  Sex: Male

DRUGS (1)
  1. CAPECITABINE. [Suspect]
     Active Substance: CAPECITABINE
     Indication: COLON CANCER
     Dosage: 4 TABLETS TWICE A DAY ON DAYS 1-14 OF 21 DAY CYCLE (TOTAL DAILY DOSE OF 2.300 MG TWICE A DAY)
     Route: 048
     Dates: start: 20150602

REACTIONS (1)
  - Irritability [Unknown]

NARRATIVE: CASE EVENT DATE: 201506
